FAERS Safety Report 4995991-4 (Version None)
Quarter: 2006Q2

REPORT INFORMATION
  Report Type: 
  Country: None (occurrence: None)
  Receive Date: 20060508
  Receipt Date: 20060406
  Transmission Date: 20061013
  Serious: Yes (Hospitalization, Disabling, Other)
  Sender: FDA-Public Use
  Company Number: US-MERCK-0604USA00924

PATIENT
  Age: 55 Year
  Sex: Female
  Weight: 89 kg

DRUGS (6)
  1. VIOXX [Suspect]
     Indication: OSTEOARTHRITIS
     Route: 048
     Dates: start: 19990101, end: 20040101
  2. VIOXX [Suspect]
     Route: 048
     Dates: start: 19990101, end: 20040101
  3. ZOLOFT [Concomitant]
     Route: 048
  4. DARVOCET [Concomitant]
     Route: 048
  5. XANAX [Concomitant]
     Route: 048
  6. ZANTAC [Concomitant]
     Route: 048

REACTIONS (17)
  - ACUTE MYOCARDIAL INFARCTION [None]
  - ANXIETY [None]
  - BLOOD GLUCOSE INCREASED [None]
  - CARDIAC FAILURE CONGESTIVE [None]
  - CEREBROVASCULAR ACCIDENT [None]
  - CORONARY ARTERY DISEASE [None]
  - CORONARY ARTERY OCCLUSION [None]
  - DEPRESSION [None]
  - EXTRASYSTOLES [None]
  - GLUCOSE TOLERANCE IMPAIRED [None]
  - HEART RATE IRREGULAR [None]
  - HYPOKINESIA [None]
  - MYOCARDIAL INFARCTION [None]
  - PULMONARY CONGESTION [None]
  - PULMONARY OEDEMA [None]
  - RENAL FAILURE [None]
  - VENTRICULAR EXTRASYSTOLES [None]
